FAERS Safety Report 17575937 (Version 1)
Quarter: 2020Q1

REPORT INFORMATION
  Report Type: Spontaneous
  Country: US (occurrence: US)
  Receive Date: 20200324
  Receipt Date: 20200324
  Transmission Date: 20200409
  Serious: No
  Sender: FDA-Public Use
  Company Number: US-VERTEX PHARMACEUTICALS-2020-005834

PATIENT
  Age: 24 Year
  Sex: Male
  Weight: 66 kg

DRUGS (10)
  1. HUMALOG [Concomitant]
     Active Substance: INSULIN LISPRO
  2. CIPROFLOXACIN HCL [Concomitant]
     Active Substance: CIPROFLOXACIN HYDROCHLORIDE
  3. CAYSTON [Concomitant]
     Active Substance: AZTREONAM
  4. TOBRAMYCIN. [Concomitant]
     Active Substance: TOBRAMYCIN
  5. PROAIR HFA [Concomitant]
     Active Substance: ALBUTEROL SULFATE
  6. TRIKAFTA [Suspect]
     Active Substance: ELEXACAFTOR\IVACAFTOR\TEZACAFTOR
     Indication: CYSTIC FIBROSIS
     Dosage: 2 TABLETS (100 MG ELEXACAFTOR/ 50 MG TEZACAFTOR/ 75 MG IVACAFTOR) AM; 1 TABLET (150MG IVACAFTOR) PM
     Route: 048
     Dates: start: 20200310
  7. PULMOZYME [Concomitant]
     Active Substance: DORNASE ALFA
  8. VITAMIN D2 [Concomitant]
     Active Substance: ERGOCALCIFEROL
  9. TRESIBA [Concomitant]
     Active Substance: INSULIN DEGLUDEC
  10. CREON [Concomitant]
     Active Substance: PANCRELIPASE AMYLASE\PANCRELIPASE LIPASE\PANCRELIPASE PROTEASE

REACTIONS (1)
  - Pyrexia [Not Recovered/Not Resolved]

NARRATIVE: CASE EVENT DATE: 20200310
